FAERS Safety Report 23334250 (Version 1)
Quarter: 2023Q4

REPORT INFORMATION
  Report Type: Spontaneous
  Country: GR (occurrence: GR)
  Receive Date: 20231223
  Receipt Date: 20231223
  Transmission Date: 20240109
  Serious: Yes (Other)
  Sender: FDA-Public Use
  Company Number: GR-BIOCON-BBL2023001407

PATIENT

DRUGS (1)
  1. HULIO [Suspect]
     Active Substance: ADALIMUMAB-FKJP
     Indication: Juvenile spondyloarthritis
     Dosage: UNK
     Route: 065

REACTIONS (1)
  - Myocarditis [Recovering/Resolving]
